FAERS Safety Report 7917143-8 (Version None)
Quarter: 2011Q4

REPORT INFORMATION
  Report Type: 
  Country: None (occurrence: None)
  Receive Date: 20111116
  Receipt Date: 20111108
  Transmission Date: 20120403
  Serious: Yes (Other)
  Sender: FDA-Public Use
  Company Number: US-AMGEN-QUU369805

PATIENT
  Age: 41 Year
  Sex: Female

DRUGS (7)
  1. LEVOTHYROXINE SODIUM [Concomitant]
     Dosage: UNK UNK, UNK
  2. UNSPECIFIED MEDICATION [Concomitant]
     Dosage: UNK UNK, UNK
  3. ANTIHYPERTENSIVE MEDICATION NOS [Concomitant]
     Dosage: UNK UNK, UNK
  4. ROSUVASTATIN CALCIUM [Concomitant]
     Dosage: UNK UNK, UNK
  5. ESOMEPRAZOLE MAGNESIUM [Concomitant]
     Dosage: UNK UNK, UNK
  6. ENBREL [Suspect]
     Indication: RHEUMATOID ARTHRITIS
     Dosage: 50 MG, QWK
     Dates: start: 19981201
  7. MESALAMINE [Concomitant]
     Dosage: UNK UNK, UNK

REACTIONS (7)
  - RENAL FAILURE CHRONIC [None]
  - UPPER RESPIRATORY TRACT INFECTION [None]
  - HYPERTENSION [None]
  - RENAL FAILURE ACUTE [None]
  - TOXICITY TO VARIOUS AGENTS [None]
  - COLITIS ULCERATIVE [None]
  - INJECTION SITE PAIN [None]
